FAERS Safety Report 24743334 (Version 1)
Quarter: 2024Q4

REPORT INFORMATION
  Report Type: Spontaneous
  Country: US (occurrence: US)
  Receive Date: 20241217
  Receipt Date: 20241217
  Transmission Date: 20250115
  Serious: No
  Sender: STALLERGENES
  Company Number: US-STALCOR-2024-AER-02724

PATIENT
  Age: 50 Year
  Sex: Female

DRUGS (4)
  1. ALTERNARIA ALTERNATA [Suspect]
     Active Substance: ALTERNARIA ALTERNATA
     Indication: Pleural effusion
     Route: 058
     Dates: start: 20231221
  2. PENICILLIUM [Suspect]
     Active Substance: PENICILLIUM CHRYSOGENUM VAR. CHRYSOGENUM
     Indication: Pleural effusion
     Route: 058
     Dates: start: 20231221
  3. STEMPHYLIUM SOLANI [Suspect]
     Active Substance: STEMPHYLIUM SOLANI
     Indication: Pleural effusion
     Route: 058
     Dates: start: 20231221
  4. ALBUMIN HUMAN [Suspect]
     Active Substance: ALBUMIN HUMAN
     Indication: Pleural effusion
     Route: 058
     Dates: start: 20231221

REACTIONS (2)
  - Off label use [Unknown]
  - Injection site discolouration [Unknown]

NARRATIVE: CASE EVENT DATE: 20231221
